FAERS Safety Report 8036289-X (Version None)
Quarter: 2012Q1

REPORT INFORMATION
  Report Type: 
  Country: None (occurrence: None)
  Receive Date: 20120111
  Receipt Date: 20120106
  Transmission Date: 20120608
  Serious: Yes (Other)
  Sender: FDA-Public Use
  Company Number: PHFR2011GB007123

PATIENT
  Sex: Male

DRUGS (4)
  1. CLOZARIL [Suspect]
     Indication: SCHIZOPHRENIA
     Dosage: 375 MG
     Route: 048
     Dates: start: 20110714, end: 20111206
  2. PROPRANOLOL [Concomitant]
     Route: 048
  3. ORPHENADRINE CITRATE [Concomitant]
     Route: 048
  4. MIRTAZAPINE [Concomitant]
     Route: 048

REACTIONS (3)
  - DIZZINESS [None]
  - BRONCHOSPASM [None]
  - TACHYCARDIA [None]
